FAERS Safety Report 24259222 (Version 1)
Quarter: 2024Q3

REPORT INFORMATION
  Report Type: Spontaneous
  Country: US (occurrence: None)
  Receive Date: 20240828
  Receipt Date: 20240828
  Transmission Date: 20241017
  Serious: Yes (Other)
  Sender: Public
  Company Number: None

PATIENT
  Age: 11 Year
  Sex: Male
  Weight: 58.06 kg

DRUGS (2)
  1. DUPIXENT [Suspect]
     Active Substance: DUPILUMAB
     Indication: Asthma
     Dates: start: 20230315, end: 20240826
  2. DUPIXENT [Suspect]
     Active Substance: DUPILUMAB
     Indication: Eczema

REACTIONS (5)
  - Neuropathy peripheral [None]
  - Hot flush [None]
  - Insomnia [None]
  - Respiratory rate increased [None]
  - Pain [None]

NARRATIVE: CASE EVENT DATE: 20240828
